FAERS Safety Report 12851655 (Version 1)
Quarter: 2016Q4

REPORT INFORMATION
  Report Type: Spontaneous
  Country: US (occurrence: US)
  Receive Date: 20161014
  Receipt Date: 20161014
  Transmission Date: 20170207
  Serious: No
  Sender: FDA-Public Use
  Company Number: None

PATIENT
  Age: 6 Month
  Sex: Male
  Weight: 12.15 kg

DRUGS (1)
  1. BABY TEETHING (HYLAND HOMEOPATHIC) [Suspect]
     Active Substance: HOMEOPATHICS
     Indication: TEETHING
     Dosage: ?          QUANTITY:135 TABLET(S);?
     Route: 048
     Dates: start: 20160606, end: 20160609

REACTIONS (2)
  - Hypersensitivity [None]
  - Agitation [None]

NARRATIVE: CASE EVENT DATE: 20160615
